FAERS Safety Report 4551989-1 (Version None)
Quarter: 2005Q1

REPORT INFORMATION
  Report Type: 
  Country: None (occurrence: None)
  Receive Date: 20050112
  Receipt Date: 20041227
  Transmission Date: 20050727
  Serious: Yes (Hospitalization)
  Sender: FDA-Public Use
  Company Number: A02200403856

PATIENT
  Age: 81 Year
  Sex: Male

DRUGS (7)
  1. XATRAL (ALFUZOSIN) - TABLET [Suspect]
     Dosage: ORAL
     Route: 048
     Dates: start: 20041028, end: 20041104
  2. CELEBREX [Suspect]
     Indication: POST PROCEDURAL PAIN
     Dosage: ORAL
     Route: 048
     Dates: start: 20041006, end: 20041022
  3. CELEBREX [Suspect]
     Indication: TOE AMPUTATION
     Dosage: ORAL
     Route: 048
     Dates: start: 20041006, end: 20041022
  4. OMIX (TAMSULOSIN HYDROCHLORIDE) - CAPSULE PR - 0.4MG [Suspect]
     Dosage: 0.4MG, OD, ORAL
     Route: 048
     Dates: start: 20040923, end: 20041022
  5. LASILIX (FUROSEMIDE) [Concomitant]
  6. ZYLORIC (ALLOPURINOL0 [Concomitant]
  7. CORENITEC (ENALAPRIL, HYDROCHLOROTHIAZIDE) [Concomitant]

REACTIONS (16)
  - BLOOD PRESSURE ABNORMAL [None]
  - C-REACTIVE PROTEIN INCREASED [None]
  - CATHETER RELATED COMPLICATION [None]
  - CONDITION AGGRAVATED [None]
  - CONFUSIONAL STATE [None]
  - ECZEMA [None]
  - EOSINOPHILIA [None]
  - ERYTHEMA [None]
  - FACE OEDEMA [None]
  - PHLEBITIS SUPERFICIAL [None]
  - PRURITUS [None]
  - PYREXIA [None]
  - RASH GENERALISED [None]
  - RASH MACULO-PAPULAR [None]
  - RASH PUSTULAR [None]
  - STAPHYLOCOCCAL INFECTION [None]
